FAERS Safety Report 4768825-0 (Version None)
Quarter: 2005Q3

REPORT INFORMATION
  Report Type: 
  Country: None (occurrence: None)
  Receive Date: 20050914
  Receipt Date: 20050908
  Transmission Date: 20060218
  Serious: Yes (Hospitalization)
  Sender: FDA-Public Use
  Company Number: US-MERCK-0509USA00981

PATIENT
  Age: 19 Year
  Sex: Female

DRUGS (4)
  1. SINGULAIR [Suspect]
     Indication: ASTHMA
     Route: 048
  2. ALBUTEROL [Concomitant]
     Route: 065
  3. PREDNISONE [Concomitant]
     Route: 048
  4. CORTICOSTEROIDS (UNSPECIFIED) [Concomitant]
     Route: 055

REACTIONS (1)
  - EOSINOPHILIC PNEUMONIA [None]
